FAERS Safety Report 7487325-0 (Version None)
Quarter: 2011Q2

REPORT INFORMATION
  Report Type: 
  Country: None (occurrence: None)
  Receive Date: 20110518
  Receipt Date: 20110504
  Transmission Date: 20111010
  Serious: Yes (Hospitalization)
  Sender: FDA-Public Use
  Company Number: US-ELI_LILLY_AND_COMPANY-US201008007890

PATIENT
  Sex: Female

DRUGS (7)
  1. VITAMINS [Concomitant]
  2. LEVOTHYROXINE SODIUM [Concomitant]
  3. FORTEO [Suspect]
     Dosage: 20 UG, QD
     Route: 065
  4. MORPHINE [Concomitant]
     Indication: BACK PAIN
  5. FORTEO [Suspect]
     Dosage: 20 UG, DAILY (1/D)
     Route: 065
  6. LIVALO [Concomitant]
     Indication: BLOOD CHOLESTEROL
     Dates: start: 20101201
  7. FORTEO [Suspect]
     Indication: OSTEOPOROSIS
     Dosage: 20 UG, DAILY (1/D)
     Route: 065
     Dates: start: 20090901

REACTIONS (5)
  - HOSPITALISATION [None]
  - FATIGUE [None]
  - BACK PAIN [None]
  - PAIN [None]
  - HYPOAESTHESIA [None]
